FAERS Safety Report 6585823-5 (Version None)
Quarter: 2010Q1

REPORT INFORMATION
  Report Type: 
  Country: None (occurrence: None)
  Receive Date: 20100217
  Receipt Date: 20100217
  Transmission Date: 20100710
  Serious: Yes (Death)
  Sender: FDA-Public Use
  Company Number: BE-ABBOTT-10P-013-0619917-00

PATIENT
  Sex: Male
  Weight: 71 kg

DRUGS (3)
  1. LUCRIN TRIDEPOT 11.25 MG [Suspect]
     Indication: PROSTATE CANCER
     Dates: start: 20070809
  2. BICALUTAMIDE [Concomitant]
     Indication: DRUG USE FOR UNKNOWN INDICATION
     Dosage: 50 MILLIGRAMS
     Dates: start: 20070809, end: 20070909
  3. BICALUTAMIDE [Concomitant]
     Dates: start: 20080818

REACTIONS (1)
  - BREAST CANCER MALE [None]
